FAERS Safety Report 4923477-1 (Version None)
Quarter: 2006Q1

REPORT INFORMATION
  Report Type: 
  Country: None (occurrence: None)
  Receive Date: 20060227
  Receipt Date: 20060216
  Transmission Date: 20060701
  Serious: Yes (Hospitalization)
  Sender: FDA-Public Use
  Company Number: US-BRISTOL-MYERS SQUIBB COMPANY-13288485

PATIENT

DRUGS (1)
  1. PARAPLATIN [Suspect]

REACTIONS (1)
  - MYOCARDIAL INFARCTION [None]
